FAERS Safety Report 8003104-X (Version None)
Quarter: 2011Q4

REPORT INFORMATION
  Report Type: 
  Country: None (occurrence: None)
  Receive Date: 20111222
  Receipt Date: 20111209
  Transmission Date: 20120403
  Serious: Yes (Other)
  Sender: FDA-Public Use
  Company Number: PHHY2011CA67004

PATIENT
  Sex: Male

DRUGS (2)
  1. SANDOSTATIN LAR [Suspect]
     Indication: CARCINOID TUMOUR
     Dosage: 30 MG, QMO
     Route: 030
     Dates: start: 20110617
  2. ASPIRIN [Concomitant]
     Dosage: 81 MG DAILY

REACTIONS (4)
  - CARDIAC VALVE DISEASE [None]
  - BLOOD PRESSURE INCREASED [None]
  - PRURITUS [None]
  - INJECTION SITE PAIN [None]
